FAERS Safety Report 4946292-1 (Version None)
Quarter: 2006Q1

REPORT INFORMATION
  Report Type: 
  Country: None (occurrence: None)
  Receive Date: 20060316
  Receipt Date: 20060316
  Transmission Date: 20060701
  Serious: Yes (Life-Threatening, Hospitalization)
  Sender: FDA-Public Use
  Company Number: None

PATIENT
  Age: 83 Year
  Sex: Male
  Weight: 56.6996 kg

DRUGS (1)
  1. WARFARIN DOSE NOT SPECIFIED UNKNOWN [Suspect]
     Indication: THROMBOSIS PROPHYLAXIS
     Dosage: UNSPECIFIED DAILY PO
     Route: 048

REACTIONS (7)
  - DIZZINESS [None]
  - HAEMORRHAGE [None]
  - HYPERHIDROSIS [None]
  - NAUSEA [None]
  - POST PROCEDURAL COMPLICATION [None]
  - PROTHROMBIN TIME PROLONGED [None]
  - UNRESPONSIVE TO VERBAL STIMULI [None]
